FAERS Safety Report 22680825 (Version 5)
Quarter: 2024Q3

REPORT INFORMATION
  Report Type: Spontaneous
  Country: NL (occurrence: NL)
  Receive Date: 20230707
  Receipt Date: 20240919
  Transmission Date: 20241017
  Serious: Yes (Hospitalization, Other)
  Sender: AUROBINDO
  Company Number: NL-AUROBINDO-AUR-APL-2023-046013

PATIENT
  Age: 72 Year
  Sex: Male

DRUGS (6)
  1. IRINOTECAN [Suspect]
     Active Substance: IRINOTECAN
     Indication: Metastases to liver
     Dosage: DOSE REDUCED TO 50% IN FIRST CYCLE
     Route: 065
  2. IRINOTECAN [Suspect]
     Active Substance: IRINOTECAN
     Indication: Metastases to muscle
     Dosage: DOSE REDUCED TO 25% TO 242 MG
     Route: 065
     Dates: start: 201912, end: 202001
  3. IRINOTECAN [Suspect]
     Active Substance: IRINOTECAN
     Indication: Adenocarcinoma of colon
     Dosage: 360 MG/M2 (180 MG/M2 ; 337 MG TOTAL) BIWEEKLY)
     Route: 065
     Dates: start: 201907, end: 201912
  4. IRINOTECAN [Suspect]
     Active Substance: IRINOTECAN
     Dosage: 330 MILLIGRAM, CYCLICAL(90MG/M2; 165 MG TOTAL BIWEEKLY)
     Route: 065
     Dates: start: 202009
  5. IRINOTECAN [Suspect]
     Active Substance: IRINOTECAN
     Dosage: 90 MG/M2 (90 MG/M2 (165 MG TOTAL))
     Route: 065
     Dates: start: 202009
  6. DEXAMETHASONE [Concomitant]
     Active Substance: DEXAMETHASONE
     Indication: Product used for unknown indication
     Dosage: UNK
     Route: 065

REACTIONS (4)
  - Gastrointestinal toxicity [Unknown]
  - Diarrhoea [Unknown]
  - Off label use [Unknown]
  - Product use issue [Unknown]

NARRATIVE: CASE EVENT DATE: 20190101
